FAERS Safety Report 16234696 (Version 1)
Quarter: 2019Q2

REPORT INFORMATION
  Report Type: Spontaneous
  Country: US (occurrence: US)
  Receive Date: 20190424
  Receipt Date: 20190424
  Transmission Date: 20190711
  Serious: No
  Sender: FDA-Public Use
  Company Number: US-BAYER-2019-083103

PATIENT
  Age: 49 Year
  Sex: Male
  Weight: 86 kg

DRUGS (4)
  1. FISH OIL [Concomitant]
     Active Substance: FISH OIL
  2. VITAMINS NOS [Suspect]
     Active Substance: VITAMINS
  3. CLARITIN [Suspect]
     Active Substance: LORATADINE
     Indication: HYPERSENSITIVITY
     Dosage: 1 EVERY 24 HOUR
     Route: 048
     Dates: start: 20190409, end: 20190423
  4. CLARITIN [Suspect]
     Active Substance: LORATADINE
     Indication: NASOPHARYNGITIS

REACTIONS (4)
  - Hypersensitivity [Unknown]
  - Drug ineffective [Unknown]
  - Sneezing [Unknown]
  - Lacrimation increased [Unknown]

NARRATIVE: CASE EVENT DATE: 20190409
